FAERS Safety Report 15324209 (Version 2)
Quarter: 2018Q3

REPORT INFORMATION
  Report Type: Report from Study
  Country: US (occurrence: US)
  Receive Date: 20180828
  Receipt Date: 20180903
  Transmission Date: 20181010
  Serious: No
  Sender: FDA-Public Use
  Company Number: US-AMGEN-USASL2018117149

PATIENT
  Age: 54 Year
  Sex: Female

DRUGS (2)
  1. ENBREL [Suspect]
     Active Substance: ETANERCEPT
     Indication: RHEUMATOID ARTHRITIS
     Dosage: 50 MG, QWK
     Route: 065
  2. APPLE CIDER VINEGAR [Suspect]
     Active Substance: APPLE CIDER VINEGAR
     Indication: WEIGHT ABNORMAL
     Dosage: UNK
     Route: 048

REACTIONS (10)
  - Skin discolouration [Unknown]
  - Depression [Unknown]
  - Blood pressure decreased [Unknown]
  - Headache [Unknown]
  - Chest pain [Unknown]
  - Dyspnoea [Unknown]
  - Nausea [Unknown]
  - Pollakiuria [Unknown]
  - Weight decreased [Unknown]
  - Abscess [Unknown]

NARRATIVE: CASE EVENT DATE: 201808
